FAERS Safety Report 9201347 (Version 1)
Quarter: 2013Q2

REPORT INFORMATION
  Report Type: Spontaneous
  Country: CA (occurrence: CA)
  Receive Date: 20130401
  Receipt Date: 20130401
  Transmission Date: 20140414
  Serious: Yes (Other)
  Sender: FDA-Public Use
  Company Number: CA-BRISTOL-MYERS SQUIBB COMPANY-18711002

PATIENT
  Age: 37 Year
  Sex: Female

DRUGS (1)
  1. ABILIFY [Suspect]

REACTIONS (1)
  - Glaucoma [Unknown]
